FAERS Safety Report 9063245 (Version 1)
Quarter: 2013Q1

REPORT INFORMATION
  Report Type: Spontaneous
  Country: GB (occurrence: GB)
  Receive Date: 20130213
  Receipt Date: 20130213
  Transmission Date: 20140127
  Serious: Yes (Other)
  Sender: FDA-Public Use
  Company Number: GB-GLAXOSMITHKLINE-B0865043A

PATIENT
  Age: 4 Month
  Sex: Male
  Weight: 7.3 kg

DRUGS (1)
  1. RANITIDINE [Suspect]
     Indication: VOMITING
     Dosage: 18ML PER DAY
     Route: 048
     Dates: end: 20130121

REACTIONS (7)
  - Overdose [Recovered/Resolved]
  - Drug prescribing error [Recovered/Resolved]
  - Drug dispensing error [Recovered/Resolved]
  - Diarrhoea [Recovered/Resolved]
  - Weight decreased [Recovering/Resolving]
  - Sleep disorder [Recovering/Resolving]
  - Malaise [Recovering/Resolving]
